FAERS Safety Report 9109311 (Version 3)
Quarter: 2014Q3

REPORT INFORMATION
  Report Type: Spontaneous
  Country: US (occurrence: US)
  Receive Date: 20130222
  Receipt Date: 20140806
  Transmission Date: 20150326
  Serious: Yes (Hospitalization, Other)
  Sender: FDA-Public Use
  Company Number: US-BAYER-2013-019066

PATIENT
  Age: 22 Year
  Sex: Female
  Weight: 58.05 kg

DRUGS (14)
  1. PERCOCET [Concomitant]
     Active Substance: ACETAMINOPHEN\OXYCODONE HYDROCHLORIDE
  2. ONDANSETRON [Concomitant]
     Active Substance: ONDANSETRON
  3. FLAGYL [Concomitant]
     Active Substance: METRONIDAZOLE\METRONIDAZOLE HYDROCHLORIDE
     Indication: BACTERIAL VAGINOSIS
     Dosage: TWICE DAILY FOR 7 DAYS
  4. DIFLUCAN [Concomitant]
     Active Substance: FLUCONAZOLE
     Indication: BACTERIAL VAGINOSIS
  5. MIRENA [Suspect]
     Active Substance: LEVONORGESTREL
     Indication: CONTRACEPTION
     Dosage: 20 MCG/24HR, CONT
     Route: 015
     Dates: start: 20060717, end: 20120228
  6. DARVOCET [Concomitant]
     Active Substance: ACETAMINOPHEN\PROPOXYPHENE HYDROCHLORIDE
  7. ANCEF [Concomitant]
     Active Substance: CEFAZOLIN SODIUM
  8. ZOLOFT [Concomitant]
     Active Substance: SERTRALINE HYDROCHLORIDE
  9. ZITHROMAX [Concomitant]
     Active Substance: AZITHROMYCIN DIHYDRATE
  10. ORTHO TRI CYCLEN [Concomitant]
     Active Substance: ETHINYL ESTRADIOL\NORGESTIMATE
  11. LO LOESTRIN FE [Concomitant]
     Active Substance: ETHINYL ESTRADIOL\NORETHINDRONE ACETATE
  12. TUSSIONEX PENNKINETIC [Concomitant]
     Active Substance: CHLORPHENIRAMINE\HYDROCODONE
  13. ADDERALL [Concomitant]
     Active Substance: AMPHETAMINE ASPARTATE\AMPHETAMINE SULFATE\DEXTROAMPHETAMINE SACCHARATE\DEXTROAMPHETAMINE SULFATE
     Indication: ATTENTION DEFICIT/HYPERACTIVITY DISORDER
  14. OMNICEF [Concomitant]
     Active Substance: CEFDINIR

REACTIONS (17)
  - Abortion spontaneous [None]
  - Musculoskeletal chest pain [None]
  - Medical device pain [None]
  - Incision site infection [None]
  - Constipation [None]
  - Abdominal pain [None]
  - Menstruation irregular [None]
  - Ectopic pregnancy with contraceptive device [Recovered/Resolved]
  - Fear of disease [None]
  - Emotional distress [None]
  - Vaginal haemorrhage [None]
  - Back pain [None]
  - Device misuse [None]
  - Uterine perforation [None]
  - Pregnancy with contraceptive device [Recovered/Resolved]
  - Injury [None]
  - Vaginal discharge [None]

NARRATIVE: CASE EVENT DATE: 20070816
